FAERS Safety Report 21741858 (Version 1)
Quarter: 2022Q4

REPORT INFORMATION
  Report Type: Spontaneous
  Country: US (occurrence: None)
  Receive Date: 20221216
  Receipt Date: 20221216
  Transmission Date: 20230112
  Serious: Yes (unspecified)
  Sender: FDA-Public Use
  Company Number: None

PATIENT
  Sex: Female

DRUGS (2)
  1. OCREVUS [Suspect]
     Active Substance: OCRELIZUMAB
     Route: 041
     Dates: start: 20221215, end: 20221215
  2. OCREVUS [Concomitant]
     Active Substance: OCRELIZUMAB
     Dates: start: 20221215, end: 20221215

REACTIONS (2)
  - Throat irritation [None]
  - Infusion related hypersensitivity reaction [None]

NARRATIVE: CASE EVENT DATE: 20221215
